FAERS Safety Report 4372968-3 (Version None)
Quarter: 2004Q2

REPORT INFORMATION
  Report Type: 
  Country: None (occurrence: None)
  Receive Date: 20040608
  Receipt Date: 20040505
  Transmission Date: 20050107
  Serious: Yes (Hospitalization)
  Sender: FDA-Public Use
  Company Number: US-BRISTOL-MYERS SQUIBB COMPANY-12579785

PATIENT
  Age: 64 Year
  Sex: Male
  Weight: 73 kg

DRUGS (5)
  1. COUMADIN [Suspect]
     Indication: MITRAL VALVE REPLACEMENT
     Dosage: WARFARIN SODIUM INTERRUPTED AND RESTARTED ON 19-MAR-2004 FOR A LIFELONG DURATION.
     Route: 048
     Dates: start: 20040226
  2. FRAGMIN [Suspect]
  3. ATENOLOL [Concomitant]
  4. VITAMIN E [Concomitant]
  5. M.V.I. [Concomitant]

REACTIONS (7)
  - AMNESIA [None]
  - ARTHRALGIA [None]
  - DYSGEUSIA [None]
  - HAEMORRHAGE [None]
  - HEADACHE [None]
  - LOSS OF CONSCIOUSNESS [None]
  - PARAESTHESIA [None]
